FAERS Safety Report 5554068-X (Version None)
Quarter: 2007Q4

REPORT INFORMATION
  Report Type: 
  Country: None (occurrence: None)
  Receive Date: 20071212
  Receipt Date: 20071212
  Transmission Date: 20080405
  Serious: No
  Sender: FDA-Public Use
  Company Number: None

PATIENT
  Age: 38 Year
  Sex: Male
  Weight: 113.3993 kg

DRUGS (1)
  1. OXYCONTIN [Suspect]
     Indication: DIABETIC NEUROPATHY
     Dosage: 3TABS 3X A DAY PO
     Route: 048

REACTIONS (3)
  - ABDOMINAL PAIN [None]
  - INADEQUATE ANALGESIA [None]
  - NAUSEA [None]
